FAERS Safety Report 21505133 (Version 1)
Quarter: 2022Q4

REPORT INFORMATION
  Report Type: Spontaneous
  Country: DE (occurrence: DE)
  Receive Date: 20221026
  Receipt Date: 20221026
  Transmission Date: 20230112
  Serious: Yes (Other)
  Sender: FDA-Public Use
  Company Number: DE-BIOGEN-2022BI01163962

PATIENT
  Sex: Female

DRUGS (1)
  1. DALFAMPRIDINE [Suspect]
     Active Substance: DALFAMPRIDINE
     Indication: Multiple sclerosis
     Route: 050

REACTIONS (3)
  - Metastases to lung [Not Recovered/Not Resolved]
  - Breast cancer recurrent [Not Recovered/Not Resolved]
  - Alveolitis [Not Recovered/Not Resolved]

NARRATIVE: CASE EVENT DATE: 20221001
